FAERS Safety Report 12505137 (Version 1)
Quarter: 2016Q2

REPORT INFORMATION
  Report Type: Spontaneous
  Country: JP (occurrence: JP)
  Receive Date: 20160628
  Receipt Date: 20160628
  Transmission Date: 20160815
  Serious: Yes (Life-Threatening, Other)
  Sender: FDA-Public Use
  Company Number: JP-ACTAVIS-2016-13258

PATIENT
  Age: 67 Year
  Sex: Male

DRUGS (1)
  1. MORPHINE (UNKNOWN) [Suspect]
     Active Substance: MORPHINE
     Indication: PREOPERATIVE CARE
     Dosage: 5 MG, SINGLE
     Route: 030

REACTIONS (1)
  - Anaphylactic reaction [Unknown]
